FAERS Safety Report 21924594 (Version 1)
Quarter: 2023Q1

REPORT INFORMATION
  Report Type: Spontaneous
  Country: BR (occurrence: BR)
  Receive Date: 20230130
  Receipt Date: 20230130
  Transmission Date: 20230418
  Serious: Yes (Death, Hospitalization, Other)
  Sender: FDA-Public Use
  Company Number: BR-SA-SAC20230127000986

PATIENT
  Sex: Female

DRUGS (1)
  1. ISATUXIMAB [Suspect]
     Active Substance: ISATUXIMAB
     Indication: Plasma cell myeloma
     Dosage: UNK
     Dates: start: 20221129

REACTIONS (3)
  - Renal failure [Fatal]
  - COVID-19 [Fatal]
  - Pneumonia [Unknown]

NARRATIVE: CASE EVENT DATE: 20230101
